FAERS Safety Report 6268523-0 (Version None)
Quarter: 2009Q3

REPORT INFORMATION
  Report Type: 
  Country: None (occurrence: None)
  Receive Date: 20090708
  Receipt Date: 20090421
  Transmission Date: 20100115
  Serious: Yes (Other)
  Sender: FDA-Public Use
  Company Number: IMP_04346_2009

PATIENT
  Sex: Male

DRUGS (12)
  1. BUDEPRION (NOT SPECIFIED) [Suspect]
     Indication: DRUG USE FOR UNKNOWN INDICATION
     Dosage: (300 MG)
  2. LAMOTRIGINE [Suspect]
     Indication: BIPOLAR DISORDER
     Dosage: (400 MG ORAL)
     Route: 048
  3. PAROXETINE HCL [Suspect]
     Indication: DRUG USE FOR UNKNOWN INDICATION
     Dosage: (DF ORAL)
     Route: 048
     Dates: start: 19940101
  4. CLONAZEPAM [Suspect]
     Indication: DRUG USE FOR UNKNOWN INDICATION
     Dosage: (DF)
  5. LEXAPRO [Suspect]
     Indication: DEPRESSION
     Dosage: (DF)
  6. INSULIN HUMAN [Concomitant]
  7. TIOTROPIUM [Concomitant]
  8. CLOPIDOGREL BISULFATE [Concomitant]
  9. SIMVASTATIN [Concomitant]
  10. BLOOD PRESSURE MEDICATION [Concomitant]
  11. APO-HYDROXYZINE /0058401/ [Concomitant]
  12. METOPROLOL TARTRATE [Concomitant]

REACTIONS (4)
  - AMNESIA [None]
  - DEPRESSION [None]
  - HALLUCINATION [None]
  - SOMNOLENCE [None]
